FAERS Safety Report 5758501-X (Version None)
Quarter: 2008Q2

REPORT INFORMATION
  Report Type: 
  Country: None (occurrence: None)
  Receive Date: 20080604
  Receipt Date: 20080523
  Transmission Date: 20081010
  Serious: Yes (Death)
  Sender: FDA-Public Use
  Company Number: A0727250A

PATIENT
  Age: 87 Year
  Sex: Male
  Weight: 61.8 kg

DRUGS (9)
  1. ZOFRAN [Suspect]
     Indication: PROPHYLAXIS OF NAUSEA AND VOMITING
     Dosage: 8MG PER DAY
     Route: 048
     Dates: start: 20080313, end: 20080321
  2. OXYCODONE HCL [Concomitant]
  3. ALLOPURINOL [Concomitant]
  4. HYDROMORPHONE HCL [Concomitant]
  5. PROCHLORPERAZINE [Concomitant]
  6. ONDANSETRON [Concomitant]
  7. CIPRO [Concomitant]
  8. CHEMOTHERAPY [Concomitant]
  9. CARDIZEM [Concomitant]

REACTIONS (3)
  - DIFFUSE LARGE B-CELL LYMPHOMA [None]
  - LYMPHOMA TRANSFORMATION [None]
  - NON-HODGKIN'S LYMPHOMA [None]
